FAERS Safety Report 19503179 (Version 2)
Quarter: 2021Q3

REPORT INFORMATION
  Report Type: Spontaneous
  Country: CN (occurrence: CN)
  Receive Date: 20210707
  Receipt Date: 20210819
  Transmission Date: 20211014
  Serious: Yes (Death)
  Sender: FDA-Public Use
  Company Number: NVSC2021CN151725

PATIENT
  Sex: Male

DRUGS (1)
  1. EVEROLIMUS. [Suspect]
     Active Substance: EVEROLIMUS
     Indication: ANGIOMYOLIPOMA
     Dosage: 5 MG
     Route: 048
     Dates: start: 20210628, end: 20210630

REACTIONS (4)
  - Hypertension [Unknown]
  - Shock [Fatal]
  - Diarrhoea [Unknown]
  - Skin reaction [Unknown]

NARRATIVE: CASE EVENT DATE: 20210704
